FAERS Safety Report 7744917-9 (Version None)
Quarter: 2011Q3

REPORT INFORMATION
  Report Type: 
  Country: None (occurrence: None)
  Receive Date: 20110913
  Receipt Date: 20110902
  Transmission Date: 20111222
  Serious: Yes (Other)
  Sender: FDA-Public Use
  Company Number: US-BIOGENIDEC-2011BI030131

PATIENT
  Age: 43 Year
  Sex: Female

DRUGS (4)
  1. TRILEPTAL [Concomitant]
     Indication: CONVULSION
  2. TYSABRI [Suspect]
     Indication: MULTIPLE SCLEROSIS
     Route: 042
     Dates: start: 20110718
  3. AVONEX [Concomitant]
     Indication: PRODUCT USED FOR UNKNOWN INDICATION
     Route: 030
     Dates: start: 20101231
  4. KEPPRA [Concomitant]
     Indication: CONVULSION

REACTIONS (1)
  - EPILEPSY [None]
